FAERS Safety Report 6006573-X (Version None)
Quarter: 2008Q4

REPORT INFORMATION
  Report Type: 
  Country: None (occurrence: None)
  Receive Date: 20081217
  Receipt Date: 20081210
  Transmission Date: 20090506
  Serious: Yes (Hospitalization, Other)
  Sender: FDA-Public Use
  Company Number: DE-MERCK-0812DEU00197

PATIENT
  Age: 48 Year
  Sex: Female

DRUGS (24)
  1. ZOCOR [Suspect]
     Indication: HYPERCHOLESTEROLAEMIA
     Route: 048
     Dates: start: 20051212
  2. IBUPROFEN LYSINE [Suspect]
     Indication: BACK PAIN
     Route: 048
     Dates: start: 20051201, end: 20051231
  3. RADIOGRAPHIC CONTRAST MEDIUM (UNSPECIFIED) [Suspect]
     Route: 042
     Dates: start: 20051215, end: 20051215
  4. RADIOGRAPHIC CONTRAST MEDIUM (UNSPECIFIED) [Suspect]
     Route: 042
     Dates: start: 20051216, end: 20051222
  5. RADIOGRAPHIC CONTRAST MEDIUM (UNSPECIFIED) [Suspect]
     Route: 042
     Dates: start: 20051229, end: 20051230
  6. PHENYTOIN [Suspect]
     Indication: CONVULSION
     Route: 048
     Dates: start: 20051216, end: 20060103
  7. PHENYTOIN [Suspect]
     Route: 048
     Dates: start: 20060104
  8. DEXAMETHASONE SODIUM PHOSPHATE [Suspect]
     Indication: PROPHYLAXIS
     Route: 048
     Dates: start: 20051216
  9. DEXAMETHASONE SODIUM PHOSPHATE [Suspect]
     Route: 048
     Dates: start: 20051216
  10. LORAZEPAM [Suspect]
     Indication: SLEEP DISORDER
     Route: 048
     Dates: start: 20051229, end: 20051229
  11. ESOMEPRAZOLE MAGNESIUM [Suspect]
     Indication: PROPHYLAXIS AGAINST GASTROINTESTINAL ULCER
     Route: 048
     Dates: start: 20051229, end: 20060103
  12. MIDAZOLAM [Suspect]
     Indication: SEDATION
     Route: 042
     Dates: start: 20051230, end: 20051230
  13. ANESTHETIC (UNSPECIFIED) [Suspect]
     Indication: SURGERY
     Route: 058
     Dates: start: 20051230, end: 20051230
  14. ACETAMINOPHEN [Suspect]
     Indication: PAIN
     Route: 042
     Dates: start: 20051230, end: 20051230
  15. VALERIAN [Suspect]
     Indication: SLEEP DISORDER
     Route: 048
     Dates: start: 20051230, end: 20060101
  16. IODINE I 125 [Suspect]
     Indication: BRAIN NEOPLASM
     Route: 065
     Dates: start: 20051230
  17. SODIUM PICOSULFATE [Suspect]
     Indication: CONSTIPATION
     Route: 048
     Dates: start: 20051231, end: 20051231
  18. ATORVASTATIN CALCIUM [Concomitant]
     Indication: HYPERCHOLESTEROLAEMIA
     Route: 048
     Dates: start: 20050101, end: 20051211
  19. ASPIRIN [Concomitant]
     Indication: THROMBOSIS PROPHYLAXIS
     Route: 048
     Dates: start: 20051122, end: 20051216
  20. BISOPROLOL FUMARATE [Concomitant]
     Indication: HYPERTENSION
     Route: 048
     Dates: start: 20050101
  21. HYDROCHLOROTHIAZIDE AND RAMIPRIL [Concomitant]
     Indication: HYPERTENSION
     Route: 048
     Dates: start: 20000101
  22. PANTOPRAZOLE SODIUM [Concomitant]
     Route: 048
     Dates: start: 20051216, end: 20051222
  23. OXAZEPAM [Concomitant]
     Route: 048
     Dates: start: 20051217, end: 20051222
  24. LACTULOSE [Concomitant]
     Indication: CONSTIPATION
     Route: 048
     Dates: start: 20051219, end: 20051219

REACTIONS (3)
  - BRAIN NEOPLASM [None]
  - CONVULSION [None]
  - STEVENS-JOHNSON SYNDROME [None]
